FAERS Safety Report 6791365-4 (Version None)
Quarter: 2010Q2

REPORT INFORMATION
  Report Type: 
  Country: None (occurrence: None)
  Receive Date: 20100624
  Receipt Date: 20100612
  Transmission Date: 20101027
  Serious: Yes (Other)
  Sender: FDA-Public Use
  Company Number: US-PFIZER INC-2010074398

PATIENT
  Sex: Female
  Weight: 113.38 kg

DRUGS (3)
  1. CHANTIX [Suspect]
     Indication: SMOKING CESSATION THERAPY
     Dosage: 0.5 MG, 1X/DAY
     Route: 048
     Dates: start: 20100611, end: 20100612
  2. GABAPENTIN [Concomitant]
     Indication: ARTHRITIS
     Dosage: UNK
  3. ETODOLAC [Concomitant]
     Dosage: UNK

REACTIONS (1)
  - PHARYNGEAL OEDEMA [None]
